FAERS Safety Report 5603032-0 (Version None)
Quarter: 2008Q1

REPORT INFORMATION
  Report Type: 
  Country: None (occurrence: None)
  Receive Date: 20080125
  Receipt Date: 20080114
  Transmission Date: 20080703
  Serious: Yes (Hospitalization)
  Sender: FDA-Public Use
  Company Number: SE-GENENTECH-253424

PATIENT
  Age: 63 Year
  Sex: Female

DRUGS (5)
  1. AVASTIN [Suspect]
     Indication: HAEMOLYTIC ANAEMIA
     Dosage: UNK, Q3W
     Route: 042
     Dates: start: 20070821
  2. STESOLID NOVUM [Concomitant]
     Indication: DRUG USE FOR UNKNOWN INDICATION
  3. PACLITAXEL [Concomitant]
     Indication: DRUG USE FOR UNKNOWN INDICATION
  4. PLENDIL [Concomitant]
     Indication: DRUG USE FOR UNKNOWN INDICATION
  5. CONCOMITANT DRUG [Concomitant]
     Indication: DRUG USE FOR UNKNOWN INDICATION

REACTIONS (2)
  - ENCEPHALITIS [None]
  - HYPONATRAEMIA [None]
